FAERS Safety Report 7985523-0 (Version None)
Quarter: 2011Q4

REPORT INFORMATION
  Report Type: 
  Country: None (occurrence: None)
  Receive Date: 20111216
  Receipt Date: 20111208
  Transmission Date: 20120403
  Serious: Yes (Hospitalization, Other)
  Sender: FDA-Public Use
  Company Number: US-ROCHE-766021

PATIENT
  Sex: Female
  Weight: 163.44 kg

DRUGS (1)
  1. ACCUTANE [Suspect]
     Indication: DERMATITIS CONTACT
     Route: 065
     Dates: start: 19880101, end: 19890101

REACTIONS (16)
  - MUSCULOSKELETAL DISORDER [None]
  - PULMONARY EMBOLISM [None]
  - DEPRESSION [None]
  - INTESTINAL HAEMORRHAGE [None]
  - INTESTINAL OBSTRUCTION [None]
  - COLITIS ULCERATIVE [None]
  - SPINAL FRACTURE [None]
  - RENAL CYST [None]
  - INFLAMMATORY BOWEL DISEASE [None]
  - SPINAL COMPRESSION FRACTURE [None]
  - STAPHYLOCOCCAL INFECTION [None]
  - OSTEOARTHRITIS [None]
  - FIBROMYALGIA [None]
  - EMOTIONAL DISTRESS [None]
  - NEPHROLITHIASIS [None]
  - IRRITABLE BOWEL SYNDROME [None]
